FAERS Safety Report 7445662-X (Version None)
Quarter: 2011Q2

REPORT INFORMATION
  Report Type: 
  Country: None (occurrence: None)
  Receive Date: 20110429
  Receipt Date: 20110425
  Transmission Date: 20111010
  Serious: Yes (Death)
  Sender: FDA-Public Use
  Company Number: CN-ROCHE-773308

PATIENT
  Sex: Female

DRUGS (3)
  1. MYCOPHENOLATE MOFETIL [Suspect]
     Indication: LIVER TRANSPLANT
     Dosage: REPORTED DOSING LEVELS:2 DOSE FORMS TWICE A DAY
     Route: 048
     Dates: start: 20110108
  2. TACROLIMUS [Concomitant]
     Indication: LIVER TRANSPLANT
     Dates: start: 20110108
  3. PREDNISONE [Concomitant]
     Indication: LIVER TRANSPLANT
     Dates: start: 20110108

REACTIONS (1)
  - DEATH [None]
